FAERS Safety Report 5245538-2 (Version None)
Quarter: 2007Q1

REPORT INFORMATION
  Report Type: 
  Country: None (occurrence: None)
  Receive Date: 20070216
  Receipt Date: 20070206
  Transmission Date: 20070707
  Serious: Yes (Hospitalization)
  Sender: FDA-Public Use
  Company Number: GXKR2007PL01430

PATIENT
  Age: 53 Year
  Sex: Female
  Weight: 80 kg

DRUGS (2)
  1. CURAM (NGX) (AMOXICILLIN, CLAVULANATE) [Suspect]
     Indication: HELICOBACTER INFECTION
     Dosage: 2000 MG, ORAL
     Route: 048
     Dates: start: 20060902, end: 20060907
  2. TACLAIR (CLARITHROMYCIN) [Suspect]
     Indication: HELICOBACTER INFECTION
     Dosage: 1000 MG, ORAL
     Route: 047

REACTIONS (6)
  - DYSPNOEA [None]
  - PRURITUS [None]
  - RASH ERYTHEMATOUS [None]
  - RASH GENERALISED [None]
  - TONGUE OEDEMA [None]
  - URTICARIA [None]
